FAERS Safety Report 4933852-7 (Version None)
Quarter: 2006Q1

REPORT INFORMATION
  Report Type: 
  Country: None (occurrence: None)
  Receive Date: 20060306
  Receipt Date: 20060113
  Transmission Date: 20060701
  Serious: Yes (Hospitalization)
  Sender: FDA-Public Use
  Company Number: JP-MERCK-0601USA01906

PATIENT
  Age: 54 Year
  Sex: Female
  Weight: 70 kg

DRUGS (15)
  1. DECADRON [Suspect]
     Indication: ANGIOIMMUNOBLASTIC T-CELL LYMPHOMA
     Route: 048
     Dates: end: 20060131
  2. DECADRON [Suspect]
     Route: 048
     Dates: start: 20050831
  3. DECADRON [Suspect]
     Route: 048
     Dates: start: 20060201
  4. NEORAL [Concomitant]
     Route: 048
     Dates: start: 20050827
  5. URSO [Concomitant]
     Indication: HEPATIC FUNCTION ABNORMAL
     Route: 048
     Dates: start: 20050727
  6. OLMETIC [Concomitant]
     Indication: HYPERTENSION
     Route: 048
     Dates: start: 20050908, end: 20060110
  7. PEPCID RPD [Concomitant]
     Indication: HYPERCHLORHYDRIA
     Route: 048
     Dates: start: 20050805, end: 20060110
  8. ADALAT [Concomitant]
     Route: 048
     Dates: start: 20050104
  9. AMOBAN [Concomitant]
     Indication: INSOMNIA
     Route: 048
     Dates: start: 20050803, end: 20060127
  10. CRAVIT [Concomitant]
     Route: 048
     Dates: start: 20050818, end: 20051227
  11. COTRIM [Concomitant]
     Route: 048
     Dates: start: 20050818, end: 20051222
  12. BONALON [Concomitant]
     Indication: OSTEOPOROSIS
     Route: 048
     Dates: start: 20050913, end: 20051227
  13. ARTIST [Concomitant]
     Indication: HYPERTENSION
     Route: 048
     Dates: start: 20050919, end: 20051129
  14. DIFLUCAN [Concomitant]
     Route: 048
     Dates: start: 20051011, end: 20051227
  15. CYANOCOBALAMIN [Concomitant]
     Route: 048
     Dates: start: 20051026, end: 20051227

REACTIONS (2)
  - HEPATIC FUNCTION ABNORMAL [None]
  - OEDEMA [None]
